FAERS Safety Report 20732936 (Version 1)
Quarter: 2022Q2

REPORT INFORMATION
  Report Type: Report from Study
  Country: US (occurrence: US)
  Receive Date: 20220420
  Receipt Date: 20220420
  Transmission Date: 20220721
  Serious: Yes (Hospitalization, Other)
  Sender: FDA-Public Use
  Company Number: US-BRISTOL-MYERS SQUIBB COMPANY-2022-017844

PATIENT
  Age: 59 Year
  Sex: Male
  Weight: 69.8 kg

DRUGS (5)
  1. IPILIMUMAB [Suspect]
     Active Substance: IPILIMUMAB
     Indication: Glioblastoma multiforme
     Route: 065
     Dates: start: 20211010
  2. IPILIMUMAB [Suspect]
     Active Substance: IPILIMUMAB
     Dosage: 277.6 MG
     Route: 065
     Dates: start: 20211020, end: 20211215
  3. NIVOLUMAB [Suspect]
     Active Substance: NIVOLUMAB
     Indication: Glioblastoma multiforme
     Route: 065
     Dates: start: 20211010
  4. NIVOLUMAB [Suspect]
     Active Substance: NIVOLUMAB
     Dosage: 1457.4 MG
     Route: 065
     Dates: start: 20211025, end: 20211215
  5. NIVOLUMAB [Suspect]
     Active Substance: NIVOLUMAB
     Dosage: 1457.4 MG
     Route: 065
     Dates: start: 20211025, end: 20211215

REACTIONS (1)
  - Pulmonary embolism [Recovered/Resolved]

NARRATIVE: CASE EVENT DATE: 20211221
